FAERS Safety Report 4538836-9 (Version None)
Quarter: 2004Q4

REPORT INFORMATION
  Report Type: 
  Country: None (occurrence: None)
  Receive Date: 20041222
  Receipt Date: 20041202
  Transmission Date: 20050328
  Serious: Yes (Other)
  Sender: FDA-Public Use
  Company Number: USA040875191

PATIENT
  Age: 8 Year
  Sex: Female
  Weight: 23 kg

DRUGS (1)
  1. STRATTERA [Suspect]
     Dosage: 18 MG/1 DAY
     Dates: start: 20031101, end: 20040809

REACTIONS (4)
  - EPILEPSY [None]
  - FALL [None]
  - GRAND MAL CONVULSION [None]
  - WEIGHT INCREASED [None]
